FAERS Safety Report 4818999-8 (Version None)
Quarter: 2005Q4

REPORT INFORMATION
  Report Type: 
  Country: None (occurrence: None)
  Receive Date: 20051101
  Receipt Date: 20051101
  Transmission Date: 20060501
  Serious: No
  Sender: FDA-Public Use
  Company Number: None

PATIENT
  Age: 78 Year
  Sex: Female
  Weight: 119 kg

DRUGS (1)
  1. METHYLPHENIDATE    5 MG        CELLCEPT [Suspect]
     Indication: SLUGGISHNESS
     Dosage: 5 MG   BID   PO
     Route: 048
     Dates: start: 20051001, end: 20051011

REACTIONS (1)
  - TACHYCARDIA [None]
